FAERS Safety Report 7999513-5 (Version None)
Quarter: 2011Q4

REPORT INFORMATION
  Report Type: 
  Country: None (occurrence: None)
  Receive Date: 20111221
  Receipt Date: 20111216
  Transmission Date: 20120403
  Serious: No
  Sender: FDA-Public Use
  Company Number: US-PFIZER INC-2011306785

PATIENT
  Age: 42 Year
  Sex: Male
  Weight: 70.295 kg

DRUGS (3)
  1. OXYCONTIN [Concomitant]
     Dosage: UNK
  2. AVINZA [Suspect]
     Dosage: 120 MG, 2X/DAY
     Route: 048
  3. AVINZA [Suspect]
     Indication: SPINAL FRACTURE
     Dosage: 60 MG, EVERY 8 HRS
     Route: 048

REACTIONS (5)
  - DRUG DOSE OMISSION [None]
  - NAUSEA [None]
  - ANXIETY [None]
  - DIARRHOEA [None]
  - HYPERTENSION [None]
